FAERS Safety Report 6972004-6 (Version None)
Quarter: 2010Q3

REPORT INFORMATION
  Report Type: 
  Country: None (occurrence: None)
  Receive Date: 20100908
  Receipt Date: 20100908
  Transmission Date: 20110219
  Serious: Yes (Other)
  Sender: FDA-Public Use
  Company Number: None

PATIENT
  Sex: Female
  Weight: 72.5755 kg

DRUGS (1)
  1. INDAPAMIDE [Suspect]
     Dosage: 1.25 MG 1 A DAY 3-4 DAYS 2ND TIME 3 DAYS

REACTIONS (1)
  - GOUT [None]
